FAERS Safety Report 10022560 (Version 1)
Quarter: 2014Q1

REPORT INFORMATION
  Report Type: Spontaneous
  Country: US (occurrence: US)
  Receive Date: 20140319
  Receipt Date: 20140319
  Transmission Date: 20141002
  Serious: Yes (Hospitalization, Other)
  Sender: FDA-Public Use
  Company Number: US-WATSON-2014-05067

PATIENT
  Age: 33 Year
  Sex: Male

DRUGS (2)
  1. TRAZODONE HYDROCHLORIDE (WATSON LABORATORIES) [Suspect]
     Indication: DEPRESSION
     Dosage: 200 MG, SINGLE
     Route: 048
  2. TRAZODONE HYDROCHLORIDE (WATSON LABORATORIES) [Suspect]
     Dosage: 50 MG, TID
     Route: 048

REACTIONS (1)
  - Acute myocardial infarction [Recovering/Resolving]
